FAERS Safety Report 6500189-4 (Version None)
Quarter: 2009Q4

REPORT INFORMATION
  Report Type: 
  Country: None (occurrence: None)
  Receive Date: 20091127
  Receipt Date: 20081104
  Transmission Date: 20100525
  Serious: Yes (Other)
  Sender: FDA-Public Use
  Company Number: WAES 0804USA00831

PATIENT
  Age: 45 Year
  Sex: Female

DRUGS (12)
  1. FOSAMAX [Suspect]
     Indication: OSTEOPENIA
     Dosage: SEE IMAGE
     Route: 048
     Dates: start: 19970925, end: 20010227
  2. FOSAMAX [Suspect]
     Indication: OSTEOPOROSIS
     Dosage: SEE IMAGE
     Route: 048
     Dates: start: 19970925, end: 20010227
  3. FOSAMAX [Suspect]
     Indication: OSTEOPENIA
     Dosage: SEE IMAGE
     Route: 048
     Dates: start: 20011127, end: 20020321
  4. FOSAMAX [Suspect]
     Indication: OSTEOPOROSIS
     Dosage: SEE IMAGE
     Route: 048
     Dates: start: 20011127, end: 20020321
  5. FOSAMAX [Suspect]
     Indication: OSTEOPENIA
     Dosage: SEE IMAGE
     Route: 048
     Dates: start: 20010228, end: 20020501
  6. FOSAMAX [Suspect]
     Indication: OSTEOPOROSIS
     Dosage: SEE IMAGE
     Route: 048
     Dates: start: 20010228, end: 20020501
  7. FOSAMAX [Suspect]
     Indication: OSTEOPENIA
     Dosage: SEE IMAGE
     Route: 048
     Dates: start: 20020502
  8. FOSAMAX [Suspect]
     Indication: OSTEOPOROSIS
     Dosage: SEE IMAGE
     Route: 048
     Dates: start: 20020502
  9. . [Concomitant]
  10. FOSAMAX PLUS D [Suspect]
     Indication: OSTEOPENIA
     Dosage: PO
     Route: 048
     Dates: start: 19950101
  11. FOSAMAX PLUS D [Suspect]
     Indication: OSTEOPOROSIS
     Dosage: PO
     Route: 048
     Dates: start: 19950101
  12. ANTINEOPLASTIC (UNSPECIFIED) [Concomitant]

REACTIONS (16)
  - ANXIETY [None]
  - BLOOD CHOLESTEROL INCREASED [None]
  - DENTAL CARIES [None]
  - DEPRESSION [None]
  - GINGIVAL BLEEDING [None]
  - GINGIVAL INFECTION [None]
  - GINGIVAL PRURITUS [None]
  - OSTEONECROSIS [None]
  - PANIC ATTACK [None]
  - PERIODONTAL DISEASE [None]
  - PERIODONTITIS [None]
  - RESORPTION BONE INCREASED [None]
  - TEMPOROMANDIBULAR JOINT SYNDROME [None]
  - TOOTH ABSCESS [None]
  - TOOTH INFECTION [None]
  - TREMOR [None]
